FAERS Safety Report 6218801-6 (Version None)
Quarter: 2009Q2

REPORT INFORMATION
  Report Type: 
  Country: None (occurrence: None)
  Receive Date: 20090608
  Receipt Date: 20090525
  Transmission Date: 20091009
  Serious: Yes (Hospitalization, Other)
  Sender: FDA-Public Use
  Company Number: SE-ELI_LILLY_AND_COMPANY-SE200906000930

PATIENT
  Age: 51 Year
  Sex: Male

DRUGS (14)
  1. ZYPREXA [Suspect]
  2. CLOZAPINE [Concomitant]
     Dosage: 125 MG, DAILY (1/D)
     Route: 048
     Dates: start: 20060904, end: 20061107
  3. PAROXETINE HCL [Concomitant]
  4. REMERON [Concomitant]
     Route: 048
  5. GABAPENTIN ACTAVIS [Concomitant]
  6. DULCOLAX [Concomitant]
  7. PROPAVAN [Concomitant]
  8. NOZINAN [Concomitant]
  9. AKINETON /00079501/ [Concomitant]
  10. ANTABUSE [Concomitant]
  11. THERALEN [Concomitant]
     Route: 048
  12. HALDOL [Concomitant]
  13. LAKTULOS RECIP [Concomitant]
     Route: 048
  14. METFORMIN HYDROCHLORIDE [Concomitant]

REACTIONS (7)
  - ALCOHOL ABUSE [None]
  - AORTIC STENOSIS [None]
  - CARDIAC FAILURE [None]
  - CONSTIPATION [None]
  - DYSPNOEA EXERTIONAL [None]
  - HEPATIC ENZYME INCREASED [None]
  - PULMONARY HYPERTENSION [None]
